FAERS Safety Report 8207469-5 (Version None)
Quarter: 2012Q1

REPORT INFORMATION
  Report Type: 
  Country: None (occurrence: None)
  Receive Date: 20120314
  Receipt Date: 20120306
  Transmission Date: 20120608
  Serious: Yes (Other)
  Sender: FDA-Public Use
  Company Number: JP-ASTELLAS-2012JP002094

PATIENT
  Age: 17 Year
  Sex: Female

DRUGS (4)
  1. PROGRAF [Suspect]
     Indication: PROPHYLAXIS AGAINST GRAFT VERSUS HOST DISEASE
     Dosage: UNK
     Route: 065
  2. METHOTREXATE [Concomitant]
     Indication: PROPHYLAXIS AGAINST GRAFT VERSUS HOST DISEASE
     Route: 065
  3. CYCLOPHOSPHAMIDE [Concomitant]
     Route: 065
  4. DASATINIB [Concomitant]
     Indication: CHRONIC MYELOID LEUKAEMIA TRANSFORMATION
     Dosage: 140 MG, UNKNOWN/D
     Route: 065

REACTIONS (3)
  - CHRONIC GRAFT VERSUS HOST DISEASE [None]
  - DRUG INEFFECTIVE [None]
  - ACUTE GRAFT VERSUS HOST DISEASE [None]
